FAERS Safety Report 24412499 (Version 1)
Quarter: 2024Q4

REPORT INFORMATION
  Report Type: Spontaneous
  Country: US (occurrence: US)
  Receive Date: 20241008
  Receipt Date: 20241008
  Transmission Date: 20250115
  Serious: No
  Sender: Pyros Pharmaceuticals
  Company Number: US-PYROS PHARMACEUTICALS, INC-2024-PYROS-US000037

PATIENT
  Age: 4 Year
  Sex: Female
  Weight: 12.789 kg

DRUGS (3)
  1. VIGPODER [Suspect]
     Active Substance: VIGABATRIN
     Indication: Infantile spasms
     Dosage: 100 MG, SINGLE
     Route: 048
     Dates: start: 20240706, end: 20240706
  2. CLOBAZAM [Concomitant]
     Active Substance: CLOBAZAM
     Indication: Infantile spasms
     Dosage: 0.5 MG, PRN
     Route: 048
     Dates: start: 202406
  3. TOPIRAMATE [Concomitant]
     Active Substance: TOPIRAMATE
     Indication: Infantile spasms
     Dosage: 100 MG (4 ML), BID
     Route: 048
     Dates: start: 202406

REACTIONS (2)
  - Off label use [Unknown]
  - Rash [Unknown]

NARRATIVE: CASE EVENT DATE: 20240706
